FAERS Safety Report 17820058 (Version 1)
Quarter: 2020Q2

REPORT INFORMATION
  Report Type: Report from Study
  Country: None (occurrence: IT)
  Receive Date: 20200525
  Receipt Date: 20200525
  Transmission Date: 20200714
  Serious: Yes (Hospitalization)
  Sender: FDA-Public Use
  Company Number: IT-ABBVIE-18S-083-2578446-00

PATIENT
  Age: 73 Year
  Sex: Male

DRUGS (2)
  1. DUODOPA [Suspect]
     Active Substance: CARBIDOPA\LEVODOPA
     Dosage: MD: 10+3?CR: 2,7 (15H)?ED: 5
     Route: 050
  2. DUODOPA [Suspect]
     Active Substance: CARBIDOPA\LEVODOPA
     Indication: PARKINSON^S DISEASE
     Dosage: MD 10(+3), CR 3, ED 5
     Route: 050
     Dates: start: 20100621

REACTIONS (8)
  - Stoma site infection [Not Recovered/Not Resolved]
  - Stoma site odour [Unknown]
  - Stoma site discharge [Recovered/Resolved]
  - Candida infection [Unknown]
  - Stoma site hypergranulation [Recovered/Resolved]
  - Stoma site erythema [Recovered/Resolved]
  - Suture insertion [Recovered/Resolved]
  - Klebsiella infection [Unknown]

NARRATIVE: CASE EVENT DATE: 201811
